FAERS Safety Report 6149334-3 (Version None)
Quarter: 2009Q2

REPORT INFORMATION
  Report Type: 
  Country: None (occurrence: None)
  Receive Date: 20090406
  Receipt Date: 20090406
  Transmission Date: 20091009
  Serious: Yes (Hospitalization)
  Sender: FDA-Public Use
  Company Number: None

PATIENT
  Sex: Male
  Weight: 90 kg

DRUGS (1)
  1. PEGINTERFERON ALFA-2A [Suspect]
     Indication: HEPATITIS C
     Dosage: 150 MCG WEEKLY SQ
     Route: 058
     Dates: start: 20050210, end: 20090210

REACTIONS (2)
  - CELLULITIS [None]
  - INJECTION SITE ERYTHEMA [None]
